FAERS Safety Report 7741366-4 (Version None)
Quarter: 2011Q3

REPORT INFORMATION
  Report Type: 
  Country: None (occurrence: None)
  Receive Date: 20110909
  Receipt Date: 20110907
  Transmission Date: 20111222
  Serious: No
  Sender: FDA-Public Use
  Company Number: US-PFIZER INC-2011184124

PATIENT
  Sex: Female

DRUGS (3)
  1. METOPROLOL [Concomitant]
     Indication: PALPITATIONS
     Dosage: 50 MG, BID
     Dates: start: 20110801
  2. ACETYLSALICYLIC ACID [Concomitant]
     Dosage: UNK
     Dates: start: 20100701
  3. LIPITOR [Suspect]
     Indication: HYPERCHOLESTEROLAEMIA
     Dosage: 40 MG, UNK
     Route: 048
     Dates: start: 20000101

REACTIONS (1)
  - DRY EYE [None]
